FAERS Safety Report 9348919 (Version 2)
Quarter: 2013Q3

REPORT INFORMATION
  Report Type: Spontaneous
  Country: US (occurrence: US)
  Receive Date: 20130614
  Receipt Date: 20130805
  Transmission Date: 20140515
  Serious: Yes (Other)
  Sender: FDA-Public Use
  Company Number: US-COVIDIEN/TYCO HEALTHCARE/MALLINCKRODT-T201302813

PATIENT
  Age: 53 Year
  Sex: Male
  Weight: 86.17 kg

DRUGS (2)
  1. HYDROCODONE/ACETAMINOPHEN [Suspect]
     Indication: ORAL PAIN
     Dosage: 10/325 MG, Q 6 HRS PRN
     Route: 048
     Dates: start: 20130215, end: 20130317
  2. IBUPROFEN [Concomitant]
     Indication: ORAL PAIN
     Dosage: 200 MG, UNK
     Route: 048

REACTIONS (4)
  - Aggression [Unknown]
  - Depression [Recovered/Resolved]
  - Drug withdrawal syndrome [Recovered/Resolved]
  - Feeling abnormal [Recovered/Resolved]
